FAERS Safety Report 25206119 (Version 1)
Quarter: 2025Q2

REPORT INFORMATION
  Report Type: Report from Study
  Country: DE (occurrence: DE)
  Receive Date: 20250417
  Receipt Date: 20250417
  Transmission Date: 20250717
  Serious: Yes (Hospitalization)
  Sender: BAUSCH AND LOMB
  Company Number: DE-SA-SAC20230609001148

PATIENT
  Age: 55 Year
  Sex: Male
  Weight: 81 kg

DRUGS (56)
  1. DEXAMETHASONE [Suspect]
     Active Substance: DEXAMETHASONE
     Indication: Plasma cell myeloma refractory
     Route: 065
     Dates: start: 20230814, end: 20230905
  2. DEXAMETHASONE [Suspect]
     Active Substance: DEXAMETHASONE
     Indication: Prophylaxis
     Route: 065
     Dates: start: 20230619, end: 20230711
  3. DEXAMETHASONE [Suspect]
     Active Substance: DEXAMETHASONE
     Route: 065
     Dates: start: 20230124, end: 20230208
  4. DEXAMETHASONE [Suspect]
     Active Substance: DEXAMETHASONE
     Dosage: 20 MG, 6ID
     Route: 065
     Dates: start: 20230911, end: 20230926
  5. DEXAMETHASONE [Suspect]
     Active Substance: DEXAMETHASONE
     Route: 065
     Dates: start: 20230321, end: 20230405
  6. DEXAMETHASONE [Suspect]
     Active Substance: DEXAMETHASONE
     Route: 065
     Dates: start: 20230516, end: 20230606
  7. DEXAMETHASONE [Suspect]
     Active Substance: DEXAMETHASONE
     Route: 065
     Dates: start: 20221227, end: 20230112
  8. DEXAMETHASONE [Suspect]
     Active Substance: DEXAMETHASONE
     Route: 065
     Dates: start: 20230418, end: 20230503
  9. DEXAMETHASONE [Suspect]
     Active Substance: DEXAMETHASONE
     Route: 065
     Dates: start: 20230717, end: 20230808
  10. DEXAMETHASONE [Suspect]
     Active Substance: DEXAMETHASONE
     Route: 065
     Dates: start: 20230221, end: 20230308
  11. DEXAMETHASONE [Suspect]
     Active Substance: DEXAMETHASONE
     Route: 065
     Dates: start: 20230120
  12. ISATUXIMAB [Suspect]
     Active Substance: ISATUXIMAB
     Indication: Plasma cell myeloma refractory
     Dosage: 800 MG, BIW
     Route: 065
     Dates: start: 20230221, end: 20230307
  13. ISATUXIMAB [Suspect]
     Active Substance: ISATUXIMAB
     Dosage: 800 MG, QW
     Route: 065
     Dates: start: 20221227, end: 20230119
  14. ISATUXIMAB [Suspect]
     Active Substance: ISATUXIMAB
     Dosage: 800 MG, BIW
     Route: 065
     Dates: start: 20230124, end: 20230207
  15. ISATUXIMAB [Suspect]
     Active Substance: ISATUXIMAB
     Dosage: 800 MG, BIW
     Route: 065
     Dates: start: 20230418, end: 20230502
  16. ISATUXIMAB [Suspect]
     Active Substance: ISATUXIMAB
     Dosage: 800 MG, BIW
     Route: 065
     Dates: start: 20230516, end: 20230605
  17. ISATUXIMAB [Suspect]
     Active Substance: ISATUXIMAB
     Dosage: 800 MG, BIW
     Route: 065
     Dates: start: 20230321, end: 20230404
  18. ISATUXIMAB [Suspect]
     Active Substance: ISATUXIMAB
     Dosage: 800 MG, BIW
     Route: 065
     Dates: start: 20230911
  19. ISATUXIMAB [Suspect]
     Active Substance: ISATUXIMAB
     Dosage: 800 MG, BIW
     Route: 065
     Dates: start: 20230814, end: 20230828
  20. ISATUXIMAB [Suspect]
     Active Substance: ISATUXIMAB
     Dosage: 800 MG, BIW
     Route: 065
     Dates: start: 20230717, end: 20230731
  21. ISATUXIMAB [Suspect]
     Active Substance: ISATUXIMAB
     Dosage: 800 MG, BIW
     Route: 065
     Dates: start: 20230619, end: 20230703
  22. CARFILZOMIB [Suspect]
     Active Substance: CARFILZOMIB
     Indication: Plasma cell myeloma refractory
     Route: 065
     Dates: start: 20230516, end: 20230606
  23. CARFILZOMIB [Suspect]
     Active Substance: CARFILZOMIB
     Route: 065
     Dates: start: 20230911, end: 20230926
  24. CARFILZOMIB [Suspect]
     Active Substance: CARFILZOMIB
     Route: 065
     Dates: start: 20230814, end: 20230829
  25. CARFILZOMIB [Suspect]
     Active Substance: CARFILZOMIB
     Route: 065
     Dates: start: 20230124, end: 20230208
  26. CARFILZOMIB [Suspect]
     Active Substance: CARFILZOMIB
     Route: 065
     Dates: start: 20230418, end: 20230503
  27. CARFILZOMIB [Suspect]
     Active Substance: CARFILZOMIB
     Route: 065
     Dates: start: 20230321, end: 20230405
  28. CARFILZOMIB [Suspect]
     Active Substance: CARFILZOMIB
     Route: 065
     Dates: start: 20230103, end: 20230112
  29. CARFILZOMIB [Suspect]
     Active Substance: CARFILZOMIB
     Route: 065
     Dates: start: 20230619, end: 20230707
  30. CARFILZOMIB [Suspect]
     Active Substance: CARFILZOMIB
     Route: 065
     Dates: start: 20230221, end: 20230308
  31. CARFILZOMIB [Suspect]
     Active Substance: CARFILZOMIB
     Dosage: 39 MG, BID
     Route: 065
     Dates: start: 20221227, end: 20221228
  32. CARFILZOMIB [Suspect]
     Active Substance: CARFILZOMIB
     Route: 065
     Dates: start: 20230717, end: 20230801
  33. INDAPAMIDE [Concomitant]
     Active Substance: INDAPAMIDE
     Indication: Hypertension
     Route: 065
     Dates: end: 2024
  34. TELMISARTAN [Concomitant]
     Active Substance: TELMISARTAN
     Indication: Hypertension
     Route: 065
     Dates: end: 2024
  35. CLONIDINE [Concomitant]
     Active Substance: CLONIDINE
     Indication: Hypertension
     Route: 065
     Dates: start: 2023, end: 20231007
  36. EMPAGLIFLOZIN [Concomitant]
     Active Substance: EMPAGLIFLOZIN
     Indication: Product used for unknown indication
     Route: 065
     Dates: start: 2023, end: 20231007
  37. LERCANIDIPINE HYDROCHLORIDE [Concomitant]
     Active Substance: LERCANIDIPINE HYDROCHLORIDE
     Indication: Hypertension
     Route: 065
     Dates: end: 2024
  38. MOXONIDINE [Concomitant]
     Active Substance: MOXONIDINE
     Indication: Hypertension
     Route: 065
  39. POTASSIUM IODIDE [Concomitant]
     Active Substance: POTASSIUM IODIDE
     Indication: Hypothyroidism
     Route: 065
     Dates: end: 2023
  40. XARELTO [Concomitant]
     Active Substance: RIVAROXABAN
     Indication: Hypercoagulation
     Route: 065
     Dates: end: 2023
  41. PREGABALIN [Concomitant]
     Active Substance: PREGABALIN
     Indication: Peripheral sensory neuropathy
     Route: 065
     Dates: start: 20220613
  42. MONTELUKAST [Concomitant]
     Active Substance: MONTELUKAST
     Indication: Prophylaxis
     Route: 065
     Dates: start: 20221227, end: 20240212
  43. ASPIRIN [Concomitant]
     Active Substance: ASPIRIN
     Indication: Cerebrovascular accident
     Route: 065
     Dates: start: 2017
  44. SODIUM BICARBONATE [Concomitant]
     Active Substance: SODIUM BICARBONATE
     Indication: Renal failure
     Route: 065
     Dates: end: 2023
  45. CHOLECALCIFEROL [Concomitant]
     Active Substance: CHOLECALCIFEROL
     Indication: Vitamin D deficiency
     Route: 065
  46. COBALAMIN [Concomitant]
     Active Substance: COBALAMIN
     Indication: Vitamin B12 deficiency
     Route: 065
     Dates: start: 2023
  47. LENALIDOMIDE [Concomitant]
     Active Substance: LENALIDOMIDE
     Indication: Product used for unknown indication
     Route: 065
     Dates: start: 202301, end: 20230310
  48. CLEMASTINE [Concomitant]
     Active Substance: CLEMASTINE
     Indication: Prophylaxis
     Route: 065
     Dates: start: 20221227, end: 20240212
  49. BISOPROLOL [Concomitant]
     Active Substance: BISOPROLOL
     Indication: Hypertension
     Route: 065
  50. ROCEPHIN [Concomitant]
     Active Substance: CEFTRIAXONE SODIUM
     Indication: Adverse event
     Dates: start: 20231007, end: 202310
  51. IPRATROPIUM [Concomitant]
     Active Substance: IPRATROPIUM
     Indication: Product used for unknown indication
     Route: 065
     Dates: start: 20231007, end: 2023
  52. METAMIZOL [Concomitant]
     Active Substance: METAMIZOLE SODIUM
     Indication: Arthritis
     Route: 065
     Dates: start: 2023
  53. FOLIC ACID [Concomitant]
     Active Substance: FOLIC ACID
     Indication: Product used for unknown indication
     Route: 065
     Dates: start: 2023
  54. INDOMETHACIN [Concomitant]
     Active Substance: INDOMETHACIN
     Indication: Arthritis
     Route: 065
     Dates: start: 202310, end: 2023
  55. DEXAMETHASONE [Concomitant]
     Active Substance: DEXAMETHASONE
     Indication: Prophylaxis
     Route: 065
     Dates: start: 20230120, end: 20240212
  56. ATORVASTATIN\EZETIMIBE [Concomitant]
     Active Substance: ATORVASTATIN\EZETIMIBE
     Indication: Cerebrovascular accident
     Route: 065
     Dates: start: 201707

REACTIONS (9)
  - Cerebellar stroke [Recovered/Resolved with Sequelae]
  - Epilepsy [Recovered/Resolved]
  - Hemiparesis [Not Recovered/Not Resolved]
  - Thrombocytopenia [Recovered/Resolved]
  - Anaemia [Recovered/Resolved]
  - Hyperkalaemia [Recovered/Resolved]
  - Renal failure [Not Recovered/Not Resolved]
  - Urinary tract infection [Recovered/Resolved]
  - Respiratory tract infection [Recovered/Resolved]

NARRATIVE: CASE EVENT DATE: 20230228
